FAERS Safety Report 17295693 (Version 6)
Quarter: 2021Q2

REPORT INFORMATION
  Report Type: Spontaneous
  Country: US (occurrence: US)
  Receive Date: 20200121
  Receipt Date: 20210412
  Transmission Date: 20210716
  Serious: Yes (Hospitalization)
  Sender: FDA-Public Use
  Company Number: US-VERTEX PHARMACEUTICALS-2019-013436

PATIENT
  Age: 63 Year
  Sex: Female
  Weight: 63 kg

DRUGS (2)
  1. ARIKAYCE [Suspect]
     Active Substance: AMIKACIN
     Indication: MYCOBACTERIUM AVIUM COMPLEX INFECTION
     Route: 065
  2. TRIKAFTA [Suspect]
     Active Substance: ELEXACAFTOR\IVACAFTOR\TEZACAFTOR
     Indication: CYSTIC FIBROSIS
     Dosage: 100MG ELEXACAFTOR/ 50 MG TEZACAFTOR/ 75 MG IVACAFTOR; 150 MG IVACAFTOR, FREQ UNK
     Route: 048
     Dates: start: 20191202

REACTIONS (16)
  - Dyspnoea [Recovered/Resolved]
  - Flatulence [Not Recovered/Not Resolved]
  - Influenza [Recovered/Resolved]
  - Nervousness [Recovered/Resolved]
  - Dysphonia [Not Recovered/Not Resolved]
  - Throat irritation [Unknown]
  - Gastrooesophageal reflux disease [Not Recovered/Not Resolved]
  - Clumsiness [Not Recovered/Not Resolved]
  - Dizziness [Recovered/Resolved]
  - Circadian rhythm sleep disorder [Not Recovered/Not Resolved]
  - Foot fracture [Not Recovered/Not Resolved]
  - Productive cough [Not Recovered/Not Resolved]
  - Oxygen saturation decreased [Recovered/Resolved]
  - Pneumonia [Unknown]
  - Rhinorrhoea [Unknown]
  - Oropharyngeal pain [Not Recovered/Not Resolved]

NARRATIVE: CASE EVENT DATE: 201912
